FAERS Safety Report 17424860 (Version 1)
Quarter: 2020Q1

REPORT INFORMATION
  Report Type: Spontaneous
  Country: FR (occurrence: FR)
  Receive Date: 20200217
  Receipt Date: 20200217
  Transmission Date: 20200409
  Serious: Yes (Hospitalization)
  Sender: FDA-Public Use
  Company Number: FR-ACCORD-172598

PATIENT
  Sex: Female
  Weight: 62 kg

DRUGS (13)
  1. DOCETAXEL. [Suspect]
     Active Substance: DOCETAXEL
     Indication: METASTATIC LYMPHOMA
     Dosage: TPF PROTOCOL CHANGED EVERY 2 WEEKS
     Route: 041
     Dates: start: 20191226, end: 20191226
  2. KARDEGIC [Concomitant]
     Active Substance: ASPIRIN DL-LYSINE
     Route: 048
  3. PARACETAMOL [Concomitant]
     Active Substance: ACETAMINOPHEN
     Route: 048
  4. OXAZEPAM. [Concomitant]
     Active Substance: OXAZEPAM
     Route: 048
  5. SIMVASTATIN. [Concomitant]
     Active Substance: SIMVASTATIN
     Route: 048
  6. FLUOROURACIL. [Suspect]
     Active Substance: FLUOROURACIL
     Indication: METASTATIC LYMPHOMA
     Dosage: TPF PROTOCOL CHANGED EVERY 2 WEEKS
     Route: 041
     Dates: start: 20191226, end: 20191227
  7. CISPLATIN. [Suspect]
     Active Substance: CISPLATIN
     Indication: METASTATIC LYMPHOMA
     Dosage: TPF PROTOCOL CHANGED EVERY 2 WEEKS
     Route: 041
     Dates: start: 20191226, end: 20191226
  8. ENOXAPARIN [Concomitant]
     Active Substance: ENOXAPARIN
     Route: 058
  9. FOLINIC ACID [Concomitant]
     Active Substance: LEUCOVORIN
     Route: 041
  10. UMULINE [Concomitant]
     Active Substance: INSULIN HUMAN
     Route: 058
  11. PAROXETINE/PAROXETINE HYDROCHLORIDE/PAROXETINE MESILATE [Concomitant]
     Active Substance: PAROXETINE
     Route: 048
  12. PHOSPHONEUROS [Concomitant]
     Active Substance: CALCIUM PHOSPHATE, DIBASIC, ANHYDROUS\MAGNESIUM GLYCEROPHOSPHATE\PHOSPHORIC ACID\SODIUM PHOSPHATE, DIBASIC
     Dosage: ORAL SOLUTION IN DROPS
     Route: 048
  13. POTASSIUM GLUCONATE H2 PHARMA [Concomitant]
     Route: 048

REACTIONS (3)
  - Diarrhoea [Not Recovered/Not Resolved]
  - Off label use [Unknown]
  - Hypokalaemia [Recovered/Resolved]

NARRATIVE: CASE EVENT DATE: 20200107
